FAERS Safety Report 5401332-0 (Version None)
Quarter: 2007Q3

REPORT INFORMATION
  Report Type: 
  Country: None (occurrence: None)
  Receive Date: 20070726
  Receipt Date: 20070712
  Transmission Date: 20080115
  Serious: Yes (Hospitalization)
  Sender: FDA-Public Use
  Company Number: 17016

PATIENT
  Age: 46 Year
  Sex: Female

DRUGS (4)
  1. PACLITAXEL [Suspect]
     Indication: OVARIAN CANCER
     Dosage: 270 MG IV
     Route: 042
     Dates: start: 20070606, end: 20070606
  2. CETIRIZIN [Concomitant]
  3. ORADEXON TAB [Concomitant]
  4. RANIMEX [Concomitant]

REACTIONS (5)
  - BACK PAIN [None]
  - ERYTHEMA [None]
  - NAUSEA [None]
  - PARAESTHESIA [None]
  - VISUAL DISTURBANCE [None]
